FAERS Safety Report 17849238 (Version 1)
Quarter: 2020Q2

REPORT INFORMATION
  Report Type: Spontaneous
  Country: IT (occurrence: IT)
  Receive Date: 20200602
  Receipt Date: 20200602
  Transmission Date: 20200714
  Serious: Yes (Hospitalization, Other)
  Sender: FDA-Public Use
  Company Number: IT-PBT-000056

PATIENT
  Age: 46 Year

DRUGS (5)
  1. TEICOPLANIN [Suspect]
     Active Substance: TEICOPLANIN
     Indication: PYREXIA
     Route: 065
     Dates: start: 202002
  2. TACROLIMUS. [Suspect]
     Active Substance: TACROLIMUS
     Indication: PROPHYLAXIS AGAINST TRANSPLANT REJECTION
     Route: 065
     Dates: start: 201703
  3. CICLOSPORIN (CYCLOSPORIN) [Suspect]
     Active Substance: CYCLOSPORINE
     Indication: PROPHYLAXIS AGAINST TRANSPLANT REJECTION
     Route: 065
  4. ENOXAPARIN [Suspect]
     Active Substance: ENOXAPARIN
     Indication: THROMBOSIS
     Route: 065
  5. MYCOPHENOLATE MOFETIL. [Suspect]
     Active Substance: MYCOPHENOLATE MOFETIL
     Indication: PROPHYLAXIS AGAINST TRANSPLANT REJECTION
     Route: 065
     Dates: start: 202002

REACTIONS (5)
  - Renal failure [Unknown]
  - COVID-19 pneumonia [Recovered/Resolved]
  - Superinfection bacterial [Unknown]
  - Arteriovenous fistula site infection [Unknown]
  - Product use in unapproved indication [Unknown]
